FAERS Safety Report 7884349-6 (Version None)
Quarter: 2011Q4

REPORT INFORMATION
  Report Type: 
  Country: None (occurrence: None)
  Receive Date: 20111102
  Receipt Date: 20111026
  Transmission Date: 20120403
  Serious: Yes (Other)
  Sender: FDA-Public Use
  Company Number: GB-PFIZER INC-2011261941

PATIENT
  Sex: Male
  Weight: 92 kg

DRUGS (2)
  1. AMLODIPINE BESYLATE [Suspect]
     Dosage: 5 MG, 1X/DAY
     Dates: start: 20110713, end: 20110920
  2. AMLODIPINE BESYLATE [Suspect]
     Dosage: 10 MG (DOSE REGIMEN NOT SPECIFIED)

REACTIONS (1)
  - SKIN ULCER [None]
